FAERS Safety Report 4401786-2 (Version None)
Quarter: 2004Q3

REPORT INFORMATION
  Report Type: 
  Country: None (occurrence: None)
  Receive Date: 20040719
  Receipt Date: 20040708
  Transmission Date: 20050211
  Serious: Yes (Death, Hospitalization)
  Sender: FDA-Public Use
  Company Number: AU-MERCK-0407AUS00058

PATIENT
  Age: 45 Year
  Sex: Female

DRUGS (7)
  1. ABACAVIR SULFATE [Suspect]
     Indication: HIV INFECTION
     Route: 048
  2. CIPROFLOXACIN [Concomitant]
     Route: 065
  3. CRIXIVAN [Suspect]
     Indication: HIV INFECTION
     Route: 048
  4. LAMIVUDINE [Suspect]
     Indication: HIV INFECTION
     Route: 048
  5. LAMIVUDINE [Suspect]
     Indication: HEPATITIS B
     Route: 048
  6. PHENYTOIN [Concomitant]
     Indication: CONVULSION
     Route: 065
  7. RITONAVIR [Suspect]
     Indication: HIV INFECTION
     Route: 048

REACTIONS (7)
  - COAGULOPATHY [None]
  - DEATH [None]
  - ENCEPHALOPATHY [None]
  - HEPATIC FAILURE [None]
  - HEPATITIS [None]
  - IMMUNE RECONSTITUTION SYNDROME [None]
  - RENAL FAILURE [None]
